FAERS Safety Report 26061037 (Version 1)
Quarter: 2025Q4

REPORT INFORMATION
  Report Type: Spontaneous
  Country: US (occurrence: US)
  Receive Date: 20251118
  Receipt Date: 20251118
  Transmission Date: 20260118
  Serious: Yes (Other)
  Sender: NOVO NORDISK
  Company Number: US-NOVOPROD-1564898

PATIENT
  Sex: Female

DRUGS (2)
  1. NOVOLOG [Suspect]
     Active Substance: INSULIN ASPART
     Indication: Diabetes mellitus
     Dosage: 12 U, TID (12 BEFORE BREAKFAST, 12 BEFORE LUNCH AND 12 BEFORE DINNER)
     Route: 058
     Dates: start: 2015
  2. LEVEMIR [Suspect]
     Active Substance: INSULIN DETEMIR
     Indication: Diabetes mellitus
     Dosage: 60 U, QD (SOMETIMES SPLITS DOSE)
     Route: 058
     Dates: start: 2015

REACTIONS (2)
  - Rheumatoid arthritis [Unknown]
  - Vertigo [Unknown]
